FAERS Safety Report 13872608 (Version 3)
Quarter: 2018Q1

REPORT INFORMATION
  Report Type: Spontaneous
  Country: US (occurrence: US)
  Receive Date: 20170816
  Receipt Date: 20180130
  Transmission Date: 20180508
  Serious: No
  Sender: FDA-Public Use
  Company Number: US-PFIZER INC-2017351639

PATIENT

DRUGS (1)
  1. FENTANYL CITRATE. [Suspect]
     Active Substance: FENTANYL CITRATE
     Indication: ANAESTHESIA
     Dosage: 10 ML, UNK
     Dates: start: 2017

REACTIONS (4)
  - Sedation complication [Unknown]
  - Miosis [Recovered/Resolved]
  - Product quality issue [Unknown]
  - Somnolence [Unknown]

NARRATIVE: CASE EVENT DATE: 2017
